FAERS Safety Report 5226803-1 (Version None)
Quarter: 2007Q1

REPORT INFORMATION
  Report Type: 
  Country: None (occurrence: None)
  Receive Date: 20070130
  Receipt Date: 20061204
  Transmission Date: 20070707
  Serious: Yes (Life-Threatening, Disabling)
  Sender: FDA-Public Use
  Company Number: NASJP-06-0675

PATIENT
  Age: 79 Year
  Weight: 56 kg

DRUGS (2)
  1. ROPIVACAINE (ROPIVACAINE) [Suspect]
     Indication: EPIDURAL ANAESTHESIA
     Dosage: 120 MG OVER A 24 HOUR PERIOD (12 ML), EPIDURAL
     Route: 008
     Dates: start: 20060113, end: 20060113
  2. XYLOCAINE WITH EPINEPHRINE (XYLOCAINE-EPINEPHRINE) [Suspect]
     Indication: EPIDURAL ANAESTHESIA
     Dosage: 10 MG OVER A 24 HOUR PERIOD (2ML), EPIDURAL
     Route: 008
     Dates: start: 20060113, end: 20060113

REACTIONS (5)
  - BLOOD PRESSURE SYSTOLIC INCREASED [None]
  - ELECTROMECHANICAL DISSOCIATION [None]
  - HEART RATE INCREASED [None]
  - LOSS OF CONSCIOUSNESS [None]
  - ORTHOSTATIC HYPOTENSION [None]
